FAERS Safety Report 11404525 (Version 1)
Quarter: 2015Q3

REPORT INFORMATION
  Report Type: Spontaneous
  Country: US (occurrence: US)
  Receive Date: 20150821
  Receipt Date: 20150821
  Transmission Date: 20151125
  Serious: Yes (Other)
  Sender: FDA-Public Use
  Company Number: US-SA-2015SA123341

PATIENT
  Age: 67 Year
  Sex: Female

DRUGS (2)
  1. SOLOSTAR [Concomitant]
     Active Substance: DEVICE
  2. LANTUS SOLOSTAR [Suspect]
     Active Substance: INSULIN GLARGINE
     Indication: TYPE 2 DIABETES MELLITUS
     Dosage: 2-3 YEARS DOSE:25 UNIT(S)
     Route: 065

REACTIONS (3)
  - Weight decreased [Unknown]
  - Inappropriate schedule of drug administration [Unknown]
  - Knee operation [Unknown]
